FAERS Safety Report 5748356-1 (Version None)
Quarter: 2008Q2

REPORT INFORMATION
  Report Type: 
  Country: None (occurrence: None)
  Receive Date: 20080523
  Receipt Date: 20080513
  Transmission Date: 20081010
  Serious: Yes (Other)
  Sender: FDA-Public Use
  Company Number: NZ-PFIZER INC-2008031878

PATIENT
  Sex: Male

DRUGS (2)
  1. ZELDOX (CAPSULES) [Suspect]
     Indication: MAJOR DEPRESSION
     Route: 048
  2. CITALOPRAM HYDROBROMIDE [Concomitant]
     Dosage: DAILY DOSE:20MG-FREQ:DAILY
     Route: 048

REACTIONS (3)
  - AKATHISIA [None]
  - DRUG EFFECT DECREASED [None]
  - RESTLESS LEGS SYNDROME [None]
